FAERS Safety Report 6821393-1 (Version None)
Quarter: 2010Q3

REPORT INFORMATION
  Report Type: 
  Country: None (occurrence: None)
  Receive Date: 20100707
  Receipt Date: 20080925
  Transmission Date: 20110219
  Serious: No
  Sender: FDA-Public Use
  Company Number: US-PFIZER INC-2008081349

PATIENT
  Sex: Female
  Weight: 51.363 kg

DRUGS (3)
  1. ZOLOFT [Suspect]
     Indication: ANXIETY
  2. ZOLOFT [Suspect]
     Indication: DEPRESSION
  3. ZOLOFT [Suspect]
     Indication: PREMENSTRUAL SYNDROME

REACTIONS (5)
  - ANXIETY [None]
  - FRUSTRATION [None]
  - PALPITATIONS [None]
  - PARAESTHESIA [None]
  - TREMOR [None]
